FAERS Safety Report 6193630-0 (Version None)
Quarter: 2009Q2

REPORT INFORMATION
  Report Type: 
  Country: None (occurrence: None)
  Receive Date: 20090518
  Receipt Date: 20090411
  Transmission Date: 20091009
  Serious: No
  Sender: FDA-Public Use
  Company Number: US-BAYER-200910321BCC

PATIENT
  Age: 55 Year
  Sex: Female
  Weight: 76 kg

DRUGS (5)
  1. ALEVE [Suspect]
     Indication: PAIN IN EXTREMITY
     Dosage: TOTAL DAILY DOSE: 2640 MG  UNIT DOSE: 220 MG
     Route: 048
     Dates: start: 20090126
  2. ALEVE [Suspect]
     Dosage: TOTAL DAILY DOSE: 220 MG  UNIT DOSE: 220 MG
     Route: 048
     Dates: start: 20090125
  3. ALEVE [Suspect]
     Dosage: BOTTLE COUNT 50
     Route: 048
     Dates: start: 20090118, end: 20090124
  4. TRIAMTERENE AND HYDROCHLOROTHIAZIDE [Concomitant]
  5. VITAMIN TAB [Concomitant]

REACTIONS (1)
  - RENAL PAIN [None]
